FAERS Safety Report 20822728 (Version 2)
Quarter: 2022Q2

REPORT INFORMATION
  Report Type: Spontaneous
  Country: IT (occurrence: IT)
  Receive Date: 20220512
  Receipt Date: 20220524
  Transmission Date: 20220720
  Serious: Yes (Life-Threatening, Hospitalization, Other)
  Sender: FDA-Public Use
  Company Number: IT-MLMSERVICE-20220429-3530320-1

PATIENT
  Age: 12 Year
  Sex: Male
  Weight: 34 kg

DRUGS (6)
  1. METHYLPREDNISOLONE SODIUM SUCCINATE [Suspect]
     Active Substance: METHYLPREDNISOLONE SODIUM SUCCINATE
     Indication: Asthma
     Dosage: 40 MG
     Route: 042
  2. ALBUTEROL [Suspect]
     Active Substance: ALBUTEROL
     Indication: Asthma
     Dosage: 1.4 MG, DAILY (0.2 MG OF INHALED SALBUTAMOL EVERY 3 HOURS)
     Route: 055
  3. ALBUTEROL [Suspect]
     Active Substance: ALBUTEROL
     Dosage: 11.25 MG TOTAL (3.75 MG AT 20-MINUTE INTERVALS IN 60 MINUTES)
     Route: 055
  4. IPRATROPIUM BROMIDE [Concomitant]
     Active Substance: IPRATROPIUM BROMIDE
     Indication: Asthma
     Dosage: 0.5 MG AT 20-MINUTE INTERVALS
     Route: 055
  5. OXYGEN [Concomitant]
     Active Substance: OXYGEN
     Indication: Wheezing
     Dosage: TREE OXYGEN-DRIVEN NEBULIZATIONS
     Route: 055
  6. OXYGEN [Concomitant]
     Active Substance: OXYGEN
     Indication: Hypoxia

REACTIONS (9)
  - Electrocardiogram QT prolonged [Recovered/Resolved]
  - Lactic acidosis [Recovered/Resolved]
  - Toxicity to various agents [Recovered/Resolved]
  - Tachycardia [Recovered/Resolved]
  - Hypokalaemia [Recovered/Resolved]
  - Hyperglycaemia [Recovered/Resolved]
  - Diastolic hypotension [Recovered/Resolved]
  - Syncope [Recovered/Resolved]
  - Tremor [Recovered/Resolved]
